FAERS Safety Report 19617610 (Version 1)
Quarter: 2021Q3

REPORT INFORMATION
  Report Type: Spontaneous
  Country: FR (occurrence: FR)
  Receive Date: 20210728
  Receipt Date: 20210728
  Transmission Date: 20211014
  Serious: Yes (Life-Threatening)
  Sender: FDA-Public Use
  Company Number: FR-SUN PHARMACEUTICAL INDUSTRIES LTD-2021RR-305794

PATIENT
  Age: 84 Year
  Sex: Female
  Weight: 90 kg

DRUGS (8)
  1. AMLODIPINE [Suspect]
     Active Substance: AMLODIPINE BESYLATE
     Indication: HYPERTENSION
     Dosage: 5 MILLIGRAM, DAILY
     Route: 048
  2. PERINDOPRIL [Suspect]
     Active Substance: PERINDOPRIL
     Indication: HYPERTENSION
     Dosage: 4 MILLIGRAM, DAILY
     Route: 048
  3. BACTRIM [Suspect]
     Active Substance: SULFAMETHOXAZOLE\TRIMETHOPRIM
     Indication: OSTEITIS
     Dosage: 2 DOSAGE FORM, DAILY
     Route: 048
     Dates: start: 202105, end: 20210519
  4. OXAZEPAM. [Suspect]
     Active Substance: OXAZEPAM
     Indication: PSYCHOTIC DISORDER
     Dosage: 20 MILLIGRAM, DAILY
     Route: 048
  5. APIXABAN [Suspect]
     Active Substance: APIXABAN
     Indication: ATRIAL FIBRILLATION
     Dosage: 10 MILLIGRAM, DAILY
     Route: 048
  6. CHLORHYDRATE DE CLOMIPRAMINE [Suspect]
     Active Substance: CLOMIPRAMINE HYDROCHLORIDE
     Indication: PSYCHOTIC DISORDER
     Dosage: 3.7 MILLIGRAM, DAILY
     Route: 048
  7. TOVIAZ [Suspect]
     Active Substance: FESOTERODINE FUMARATE
     Indication: PRODUCT USED FOR UNKNOWN INDICATION
     Dosage: 1 DOSAGE FORM, DAILY
     Route: 048
  8. ARIPIPRAZOLE. [Suspect]
     Active Substance: ARIPIPRAZOLE
     Indication: PSYCHOTIC DISORDER
     Dosage: 10 MILLIGRAM, DAILY
     Route: 048

REACTIONS (2)
  - Encephalopathy [Recovered/Resolved]
  - Anaphylactic shock [Recovered/Resolved]

NARRATIVE: CASE EVENT DATE: 20210619
